FAERS Safety Report 8599762-1 (Version None)
Quarter: 2012Q3

REPORT INFORMATION
  Report Type: 
  Country: None (occurrence: None)
  Receive Date: 20120816
  Receipt Date: 20120730
  Transmission Date: 20120928
  Serious: Yes (Other)
  Sender: FDA-Public Use
  Company Number: CH-MYLANLABS-2012S1015746

PATIENT
  Age: 36 Year
  Sex: Male

DRUGS (1)
  1. FINASTERIDE [Suspect]
     Indication: ALOPECIA
     Dosage: 1 MG/DAY
     Route: 065

REACTIONS (2)
  - TESTIS CANCER [None]
  - GYNAECOMASTIA [None]
